FAERS Safety Report 17654351 (Version 3)
Quarter: 2020Q2

REPORT INFORMATION
  Report Type: Report from Study
  Country: IT (occurrence: IT)
  Receive Date: 20200410
  Receipt Date: 20200612
  Transmission Date: 20200713
  Serious: Yes (Other)
  Sender: FDA-Public Use
  Company Number: IT-GLAXOSMITHKLINE-IT2020061202

PATIENT
  Age: 27 Year
  Sex: Male

DRUGS (2)
  1. DICLOFENAC SODIUM. [Suspect]
     Active Substance: DICLOFENAC SODIUM
     Indication: MYALGIA
     Dosage: 1 DF, SINGLE
     Route: 048
     Dates: start: 20200207, end: 20200207
  2. ASPIRINA [Suspect]
     Active Substance: ASPIRIN
     Indication: MYALGIA
     Dosage: 1 DF, SINGLE
     Route: 048
     Dates: start: 20200207, end: 20200207

REACTIONS (2)
  - Diarrhoea [Recovered/Resolved]
  - Dermatitis allergic [Recovered/Resolved]

NARRATIVE: CASE EVENT DATE: 20200207
